FAERS Safety Report 8364031-1 (Version None)
Quarter: 2012Q2

REPORT INFORMATION
  Report Type: 
  Country: None (occurrence: None)
  Receive Date: 20120516
  Receipt Date: 20120222
  Transmission Date: 20120825
  Serious: Yes (Hospitalization)
  Sender: FDA-Public Use
  Company Number: US-ALEXION-A201200281

PATIENT
  Sex: Female

DRUGS (4)
  1. HYDRALAZINE HCL [Concomitant]
     Dosage: UNK
     Dates: start: 20111101
  2. SEROQUEL [Concomitant]
  3. SOLIRIS [Suspect]
     Indication: HAEMOLYTIC URAEMIC SYNDROME
     Dosage: UNK
     Route: 042
     Dates: start: 20120210
  4. LEXAPRO [Concomitant]

REACTIONS (3)
  - HAEMOGLOBIN DECREASED [None]
  - HAEMATOCRIT DECREASED [None]
  - FLUID OVERLOAD [None]
